FAERS Safety Report 19504474 (Version 1)
Quarter: 2021Q3

REPORT INFORMATION
  Report Type: Spontaneous
  Country: US (occurrence: US)
  Receive Date: 20210707
  Receipt Date: 20210707
  Transmission Date: 20211014
  Serious: No
  Sender: FDA-Public Use
  Company Number: None

PATIENT
  Age: 70 Year
  Sex: Male
  Weight: 127 kg

DRUGS (1)
  1. EMPAGLIFLOZIN/METFORMIN (EMPAGLIFLOZIN 5MG/METFORMIN 1000MG TAB.ORAL) [Suspect]
     Active Substance: EMPAGLIFLOZIN\METFORMIN HYDROCHLORIDE
     Indication: DIABETES MELLITUS
     Route: 048
     Dates: start: 20200714, end: 20200928

REACTIONS (2)
  - Hypotension [None]
  - Urosepsis [None]

NARRATIVE: CASE EVENT DATE: 20210415
